FAERS Safety Report 4876327-6 (Version None)
Quarter: 2005Q4

REPORT INFORMATION
  Report Type: 
  Country: None (occurrence: None)
  Receive Date: 20051206
  Receipt Date: 20050923
  Transmission Date: 20060501
  Serious: No
  Sender: FDA-Public Use
  Company Number: USA0508104864

PATIENT
  Age: 77 Year
  Sex: Male

DRUGS (13)
  1. CYMBALTA [Suspect]
     Indication: DIABETES MELLITUS NON-INSULIN-DEPENDENT
     Dosage: 30 MG/ 1 DAY
     Dates: start: 20050802
  2. CYMBALTA [Suspect]
     Indication: NEUROPATHY PERIPHERAL
     Dosage: 30 MG/ 1 DAY
     Dates: start: 20050802
  3. COUMADIN [Concomitant]
  4. PREDNISONE [Concomitant]
  5. METFORMIN HCL [Concomitant]
  6. SYNTHROID [Concomitant]
  7. FOLIC ACID [Concomitant]
  8. MAGNESIUM W/ POTASSIUM [Concomitant]
  9. ANTIOXIDANT [Concomitant]
  10. GARLIQUE (GARLIC) [Concomitant]
  11. THIAMINE [Concomitant]
  12. STOOL SOFTENER (DOCUSATE SODIUM) [Concomitant]
  13. FLOMAX [Concomitant]

REACTIONS (11)
  - ANORGASMIA [None]
  - BEDRIDDEN [None]
  - CONSTIPATION [None]
  - DYSURIA [None]
  - EJACULATION FAILURE [None]
  - FEELING JITTERY [None]
  - HYPERSOMNIA [None]
  - LETHARGY [None]
  - NERVOUSNESS [None]
  - SEXUAL DYSFUNCTION [None]
  - SOMNOLENCE [None]
